FAERS Safety Report 6693219-0 (Version None)
Quarter: 2010Q2

REPORT INFORMATION
  Report Type: 
  Country: None (occurrence: None)
  Receive Date: 20100421
  Receipt Date: 20100421
  Transmission Date: 20101027
  Serious: Yes (Death)
  Sender: FDA-Public Use
  Company Number: None

PATIENT
  Age: 50 Year
  Sex: Male
  Weight: 70.3075 kg

DRUGS (1)
  1. SIMPONI [Suspect]
     Indication: RHEUMATOID ARTHRITIS
     Dosage: 50MG ONCE A MONTH OTHER
     Route: 050
     Dates: start: 20091210, end: 20100210

REACTIONS (6)
  - HAEMOGLOBIN DECREASED [None]
  - HAEMORRHAGE [None]
  - HEPATOSPLENOMEGALY [None]
  - LYMPHOMA [None]
  - PLATELET COUNT DECREASED [None]
  - RENAL FAILURE [None]
